FAERS Safety Report 23180407 (Version 1)
Quarter: 2023Q4

REPORT INFORMATION
  Report Type: Spontaneous
  Country: GB (occurrence: GB)
  Receive Date: 20231114
  Receipt Date: 20231114
  Transmission Date: 20240110
  Serious: Yes (Disabling, Other)
  Sender: FDA-Public Use
  Company Number: None

PATIENT
  Age: 2 Month
  Sex: Female
  Weight: 24 kg

DRUGS (1)
  1. TRANSDERM SCOP [Suspect]
     Active Substance: SCOPOLAMINE
     Indication: Adverse drug reaction
     Dosage: DOSAGE TEXT: I PATCH EVERY 72 HOURS, (BATCH/LOT NUMBER: DISCARDED LAST PACKAGING)
     Route: 065
     Dates: start: 2019, end: 20231021

REACTIONS (4)
  - Discomfort [Recovered/Resolved]
  - Dystonia [Recovering/Resolving]
  - Nausea [Recovering/Resolving]
  - Medication error [Unknown]
